FAERS Safety Report 11692371 (Version 1)
Quarter: 2015Q4

REPORT INFORMATION
  Report Type: Spontaneous
  Country: US (occurrence: US)
  Receive Date: 20151103
  Receipt Date: 20151103
  Transmission Date: 20160304
  Serious: Yes (Other)
  Sender: FDA-Public Use
  Company Number: US-ASTRAZENECA-2015SF04991

PATIENT
  Age: 36141 Day
  Sex: Female
  Weight: 44.9 kg

DRUGS (1)
  1. TUDORZA PRESSAIR [Suspect]
     Active Substance: ACLIDINIUM BROMIDE
     Indication: CHRONIC OBSTRUCTIVE PULMONARY DISEASE
     Dosage: 400 MCG 1 PUFF EVERY 12 HOURS
     Route: 055

REACTIONS (3)
  - Pulmonary oedema [Unknown]
  - Respiratory tract infection [Unknown]
  - Product quality issue [Unknown]

NARRATIVE: CASE EVENT DATE: 20151002
